FAERS Safety Report 6325323-0 (Version None)
Quarter: 2009Q3

REPORT INFORMATION
  Report Type: 
  Country: None (occurrence: None)
  Receive Date: 20090824
  Receipt Date: 20090626
  Transmission Date: 20100115
  Serious: No
  Sender: FDA-Public Use
  Company Number: US-ABBOTT-09P-163-0582243-00

PATIENT
  Sex: Female
  Weight: 72.64 kg

DRUGS (10)
  1. NIASPAN [Suspect]
     Indication: BLOOD CHOLESTEROL INCREASED
     Dates: start: 20090617, end: 20090620
  2. LOVAZA [Concomitant]
     Indication: DRUG USE FOR UNKNOWN INDICATION
  3. ALBUTEROL [Concomitant]
     Indication: DRUG USE FOR UNKNOWN INDICATION
  4. NEXIUM [Concomitant]
     Indication: DRUG USE FOR UNKNOWN INDICATION
  5. CARTILAGE [Concomitant]
     Indication: DRUG USE FOR UNKNOWN INDICATION
  6. MVT-LIFEPACK [Concomitant]
     Indication: DRUG USE FOR UNKNOWN INDICATION
  7. ACTONEL [Concomitant]
     Indication: DRUG USE FOR UNKNOWN INDICATION
  8. PREDNISONE TAB [Concomitant]
     Indication: DRUG USE FOR UNKNOWN INDICATION
  9. FLORINEF [Concomitant]
     Indication: DRUG USE FOR UNKNOWN INDICATION
  10. SYNTHROID [Concomitant]
     Indication: DRUG USE FOR UNKNOWN INDICATION

REACTIONS (5)
  - DRY MOUTH [None]
  - FLUSHING [None]
  - LOSS OF CONSCIOUSNESS [None]
  - NAUSEA [None]
  - VOMITING [None]
